FAERS Safety Report 21923997 (Version 5)
Quarter: 2023Q4

REPORT INFORMATION
  Report Type: Report from Study
  Country: US (occurrence: US)
  Receive Date: 20230130
  Receipt Date: 20231218
  Transmission Date: 20240110
  Serious: Yes (Hospitalization)
  Sender: FDA-Public Use
  Company Number: US-002147023-NVSC2023US016773

PATIENT
  Sex: Male

DRUGS (3)
  1. ILARIS [Suspect]
     Active Substance: CANAKINUMAB
     Indication: Pyrexia
     Dosage: 150 MG, Q4W
     Route: 058
     Dates: start: 20191006
  2. ILARIS [Suspect]
     Active Substance: CANAKINUMAB
     Dosage: 150 MG, EVERY 14 DAYS
     Route: 058
     Dates: start: 20191108
  3. ILARIS [Suspect]
     Active Substance: CANAKINUMAB
     Dosage: LAST INJECTION
     Route: 058
     Dates: start: 20230812

REACTIONS (3)
  - Cerebrovascular accident [Unknown]
  - Pain [Unknown]
  - Migraine [Not Recovered/Not Resolved]
